FAERS Safety Report 19605818 (Version 2)
Quarter: 2021Q3

REPORT INFORMATION
  Report Type: Spontaneous
  Country: IT (occurrence: IT)
  Receive Date: 20210723
  Receipt Date: 20210809
  Transmission Date: 20211014
  Serious: Yes (Other)
  Sender: FDA-Public Use
  Company Number: IT-ELI_LILLY_AND_COMPANY-IT202107006105

PATIENT
  Age: 39 Year
  Sex: Female

DRUGS (2)
  1. FORSTEO 250UG/ML [Suspect]
     Active Substance: TERIPARATIDE
     Indication: OSTEOPOROSIS
     Dosage: UNK UNK, UNKNOWN
     Route: 065
     Dates: start: 201911, end: 202107
  2. PREFOLIC [Concomitant]
     Active Substance: LEUCOVORIN CALCIUM
     Indication: BONE LOSS

REACTIONS (3)
  - Risk of future pregnancy miscarriage [Unknown]
  - Maternal exposure during pregnancy [Not Recovered/Not Resolved]
  - Musculoskeletal discomfort [Unknown]
